FAERS Safety Report 10359238 (Version 1)
Quarter: 2014Q3

REPORT INFORMATION
  Report Type: Spontaneous
  Country: US (occurrence: None)
  Receive Date: 20140731
  Receipt Date: 20140731
  Transmission Date: 20150326
  Serious: Yes (Other)
  Sender: FDA-Public Use
  Company Number: None

PATIENT
  Age: 65 Year
  Sex: Male
  Weight: 89 kg

DRUGS (3)
  1. SUCCINYLCHOLINE [Suspect]
     Active Substance: SUCCINYLCHOLINE
     Route: 042
     Dates: start: 20140725, end: 20140725
  2. BLOXIVERZ [Concomitant]
     Active Substance: NEOSTIGMINE METHYLSULFATE
  3. ROCURONIUM BROMIDE. [Suspect]
     Active Substance: ROCURONIUM BROMIDE
     Route: 042
     Dates: start: 20140725, end: 20140725

REACTIONS (2)
  - Conjunctival haemorrhage [None]
  - Eye discharge [None]

NARRATIVE: CASE EVENT DATE: 20140726
